FAERS Safety Report 17247251 (Version 1)
Quarter: 2020Q1

REPORT INFORMATION
  Report Type: Report from Study
  Country: CO (occurrence: CO)
  Receive Date: 20200108
  Receipt Date: 20200108
  Transmission Date: 20200409
  Serious: Yes (Other)
  Sender: FDA-Public Use
  Company Number: NVSC2020CO002458

PATIENT
  Sex: Female
  Weight: 70 kg

DRUGS (3)
  1. FUROSEMIDE. [Suspect]
     Active Substance: FUROSEMIDE
     Indication: FLUID RETENTION
     Dosage: UNK, QD (4 YEARS AGO APPROXIMATELY)
     Route: 048
  2. LOSARTAN. [Suspect]
     Active Substance: LOSARTAN
     Indication: HYPERTENSION
     Dosage: 50 MG (ONE IN THE MORNING AND ONE IN THE AFTERNOON)
     Route: 048
  3. AMLODIPINE [Suspect]
     Active Substance: AMLODIPINE BESYLATE
     Indication: HYPERTENSION
     Dosage: UNK UNK, QD (20 YEARS AGO APPROXIMATELY)
     Route: 048

REACTIONS (3)
  - Breast cancer [Unknown]
  - Fluid retention [Unknown]
  - Inflammation [Unknown]
